FAERS Safety Report 6539918-2 (Version None)
Quarter: 2010Q1

REPORT INFORMATION
  Report Type: 
  Country: None (occurrence: None)
  Receive Date: 20100111
  Receipt Date: 20091229
  Transmission Date: 20100710
  Serious: Yes (Other)
  Sender: FDA-Public Use
  Company Number: 09US001236

PATIENT
  Age: 79 Year
  Sex: Female

DRUGS (5)
  1. PAROXETINE HCL [Suspect]
     Indication: DRUG USE FOR UNKNOWN INDICATION
     Dosage: 10 MG, QD, ORAL
     Route: 048
  2. MIRTAZAPINE [Suspect]
     Indication: DRUG USE FOR UNKNOWN INDICATION
     Dosage: 30 MG, QD
  3. DONEPEZIL HCL [Concomitant]
  4. AMLODIPINE [Concomitant]
  5. ACETAMINOPHEN [Concomitant]

REACTIONS (16)
  - AGITATION [None]
  - BODY TEMPERATURE INCREASED [None]
  - CHILLS [None]
  - CONFUSIONAL STATE [None]
  - DELIRIUM [None]
  - GENERAL PHYSICAL HEALTH DETERIORATION [None]
  - HYPERHIDROSIS [None]
  - IMMOBILE [None]
  - MENINGITIS [None]
  - MENTAL STATUS CHANGES [None]
  - MUSCULAR WEAKNESS [None]
  - REFUSAL OF TREATMENT BY RELATIVE [None]
  - RHABDOMYOLYSIS [None]
  - SEROTONIN SYNDROME [None]
  - TREMOR [None]
  - URINARY INCONTINENCE [None]
